FAERS Safety Report 16658445 (Version 5)
Quarter: 2020Q3

REPORT INFORMATION
  Report Type: Report from Study
  Country: BR (occurrence: BR)
  Receive Date: 20190801
  Receipt Date: 20200922
  Transmission Date: 20201102
  Serious: Yes (Other)
  Sender: FDA-Public Use
  Company Number: PHHY2019BR053163

PATIENT
  Age: 34 Year
  Sex: Male

DRUGS (12)
  1. COSENTYX [Suspect]
     Active Substance: SECUKINUMAB
     Indication: PSORIASIS
     Dosage: 300 MG, QW
     Route: 058
     Dates: start: 20181221
  2. COSENTYX [Suspect]
     Active Substance: SECUKINUMAB
     Dosage: 300 MG, QW
     Route: 058
     Dates: start: 20181228
  3. COSENTYX [Suspect]
     Active Substance: SECUKINUMAB
     Dosage: 300 MG, QW
     Route: 058
     Dates: start: 20190118
  4. COSENTYX [Suspect]
     Active Substance: SECUKINUMAB
     Dosage: 300 MG
     Route: 065
  5. COSENTYX [Suspect]
     Active Substance: SECUKINUMAB
     Dosage: UNK UNK, QW
     Route: 058
     Dates: start: 20190703
  6. COSENTYX [Suspect]
     Active Substance: SECUKINUMAB
     Dosage: UNK (EVERY 15 DAYS)
     Route: 065
     Dates: start: 20190218
  7. COSENTYX [Suspect]
     Active Substance: SECUKINUMAB
     Dosage: UNK UNK, UNKNOWN
     Route: 065
     Dates: start: 20200809
  8. AZITHROMYCIN DIHYDRATE. [Suspect]
     Active Substance: AZITHROMYCIN DIHYDRATE
     Indication: PNEUMONIA
     Route: 065
  9. COSENTYX [Suspect]
     Active Substance: SECUKINUMAB
     Dosage: UNK (EVERY 15 DAYS)
     Route: 065
     Dates: start: 20190203
  10. COSENTYX [Suspect]
     Active Substance: SECUKINUMAB
     Dosage: UNK (EVERY 15 DAYS)
     Route: 065
     Dates: start: 20190228
  11. COSENTYX [Suspect]
     Active Substance: SECUKINUMAB
     Dosage: 300 MG, QW
     Route: 058
     Dates: start: 20190111
  12. COSENTYX [Suspect]
     Active Substance: SECUKINUMAB
     Dosage: 300 MG, QW
     Route: 058
     Dates: start: 20190104

REACTIONS (16)
  - Tooth disorder [Not Recovered/Not Resolved]
  - Mass [Recovering/Resolving]
  - Injection site bruising [Recovering/Resolving]
  - Pruritus [Recovering/Resolving]
  - Extra dose administered [Unknown]
  - Inappropriate schedule of product administration [Not Recovered/Not Resolved]
  - Pruritus [Recovered/Resolved]
  - Dental caries [Not Recovered/Not Resolved]
  - Skin wound [Recovering/Resolving]
  - Acne [Not Recovered/Not Resolved]
  - Hypertension [Recovered/Resolved]
  - Drug ineffective [Not Recovered/Not Resolved]
  - Pneumonia [Unknown]
  - Skin plaque [Recovering/Resolving]
  - Psoriasis [Recovering/Resolving]
  - Injection site pain [Unknown]

NARRATIVE: CASE EVENT DATE: 20190203
